FAERS Safety Report 11574489 (Version 1)
Quarter: 2015Q3

REPORT INFORMATION
  Report Type: Spontaneous
  Country: US (occurrence: None)
  Receive Date: 20150929
  Receipt Date: 20150929
  Transmission Date: 20151125
  Serious: Yes (Other)
  Sender: FDA-Public Use
  Company Number: None

PATIENT
  Age: 51 Year
  Sex: Female
  Weight: 105.24 kg

DRUGS (15)
  1. VITAMIN D [Concomitant]
     Active Substance: CHOLECALCIFEROL
  2. WEST WHEAT GRASS [Concomitant]
     Active Substance: PASCOPYRUM SMITHII POLLEN
  3. VITAMIN A [Concomitant]
     Active Substance: VITAMIN A
  4. VITAMIN B COMPLEX [Concomitant]
     Active Substance: CYANOCOBALAMIN\DEXPANTHENOL\NIACINAMIDE\PYRIDOXINE HYDROCHLORIDE\RIBOFLAVIN 5^-PHOSPHATE SODIUM\THIAMINE HYDROCHLORIDE\VITAMIN B COMPLEX
  5. FRENCH MARITIME (PHYNOGENOL) [Concomitant]
  6. CALCIUM [Concomitant]
     Active Substance: CALCIUM
  7. MAGNESIUM [Concomitant]
     Active Substance: MAGNESIUM
  8. FISH OIL [Concomitant]
     Active Substance: FISH OIL
  9. SPIRULINE [Concomitant]
  10. FOLIC ACID. [Concomitant]
     Active Substance: FOLIC ACID
  11. VITAMIN E [Concomitant]
     Active Substance: .ALPHA.-TOCOPHEROL
  12. NORTRIPTYLINE [Suspect]
     Active Substance: NORTRIPTYLINE
     Indication: SPINAL CORD INJURY
     Dosage: 1 PILL
     Route: 048
     Dates: start: 20150608, end: 20150611
  13. ZINC [Concomitant]
     Active Substance: ZINC\ZINC CHLORIDE
  14. BILBERRY [Concomitant]
     Active Substance: BILBERRY
  15. VITAMIN C [Concomitant]
     Active Substance: ASCORBIC ACID

REACTIONS (5)
  - Muscle spasms [None]
  - Musculoskeletal disorder [None]
  - Therapy cessation [None]
  - Palpitations [None]
  - Drug dose omission [None]

NARRATIVE: CASE EVENT DATE: 20150612
